FAERS Safety Report 7176631-5 (Version None)
Quarter: 2010Q4

REPORT INFORMATION
  Report Type: 
  Country: None (occurrence: None)
  Receive Date: 20101220
  Receipt Date: 20101213
  Transmission Date: 20110411
  Serious: Yes (Death, Other)
  Sender: FDA-Public Use
  Company Number: PHFR2010GB05793

PATIENT
  Sex: Female

DRUGS (4)
  1. CLOZARIL [Suspect]
     Indication: SCHIZOPHRENIA
     Dosage: UNK
     Route: 048
     Dates: start: 20081104
  2. CLOZARIL [Suspect]
     Dosage: 300 MG
     Route: 048
  3. EPILIM [Suspect]
     Indication: EPILEPSY
     Dosage: 1.5 G
  4. CITALOPRAM [Concomitant]
     Dosage: 20 MG
     Route: 048

REACTIONS (8)
  - BACK PAIN [None]
  - CONFUSIONAL STATE [None]
  - CONVULSION [None]
  - CYANOSIS [None]
  - DEATH [None]
  - DYSPNOEA [None]
  - OBESITY [None]
  - SYNCOPE [None]
